FAERS Safety Report 6664488-8 (Version None)
Quarter: 2010Q2

REPORT INFORMATION
  Report Type: 
  Country: None (occurrence: None)
  Receive Date: 20100401
  Receipt Date: 20100324
  Transmission Date: 20101027
  Serious: Yes (Hospitalization, Other)
  Sender: FDA-Public Use
  Company Number: FR-GILEAD-2010-0028115

PATIENT
  Sex: Male
  Weight: 58 kg

DRUGS (15)
  1. TRUVADA [Suspect]
     Indication: HIV INFECTION
     Route: 048
     Dates: start: 20080218, end: 20091101
  2. TRUVADA [Suspect]
     Dates: start: 20061101, end: 20070501
  3. KALETRA [Suspect]
     Route: 048
     Dates: start: 20080218, end: 20091101
  4. KALETRA [Suspect]
     Dates: start: 20061101, end: 20070501
  5. SYMBICORT [Suspect]
     Route: 055
     Dates: start: 20081201, end: 20100211
  6. SYMBICORT [Suspect]
     Route: 055
     Dates: start: 20081201, end: 20100211
  7. PREZISTA [Concomitant]
  8. NORVIR [Concomitant]
  9. METHADONE [Concomitant]
  10. ACETAMINOPHEN AND CODEINE PHOSPHATE [Concomitant]
  11. SEROPLEX [Concomitant]
  12. BACTRIM [Concomitant]
  13. FOLINORAL [Concomitant]
  14. ATACAND [Concomitant]
  15. RIVOTRIL [Concomitant]

REACTIONS (4)
  - HYPOPHOSPHATAEMIA [None]
  - OSTEONECROSIS [None]
  - RENAL IMPAIRMENT [None]
  - RENAL TUBULAR DISORDER [None]
